FAERS Safety Report 21538728 (Version 3)
Quarter: 2023Q1

REPORT INFORMATION
  Report Type: Spontaneous
  Country: JP (occurrence: JP)
  Receive Date: 20221102
  Receipt Date: 20230112
  Transmission Date: 20230418
  Serious: Yes (Hospitalization, Other)
  Sender: FDA-Public Use
  Company Number: JP-JNJFOC-20221025863

PATIENT
  Age: 57 Year
  Sex: Male
  Weight: 56.7 kg

DRUGS (12)
  1. DARATUMUMAB [Suspect]
     Active Substance: DARATUMUMAB
     Indication: Amyloidosis
     Dosage: DOSE UNKNOWN, 3CYCLE
     Route: 058
     Dates: start: 202201, end: 2022
  2. VELCADE [Suspect]
     Active Substance: BORTEZOMIB
     Indication: Amyloidosis
     Dosage: DOSE UNKNOWN
     Route: 065
     Dates: start: 202201, end: 2022
  3. LENALIDOMIDE [Concomitant]
     Active Substance: LENALIDOMIDE
     Indication: Plasma cell myeloma
     Dosage: DOSE UNKNOWN
     Route: 048
  4. DEXAMETHASONE [Concomitant]
     Active Substance: DEXAMETHASONE
     Indication: Amyloidosis
     Dosage: DOSE UNKNOWN, 3CYCLE
     Route: 065
     Dates: start: 202201, end: 2022
  5. CYCLOPHOSPHAMIDE [Concomitant]
     Active Substance: CYCLOPHOSPHAMIDE
     Indication: Amyloidosis
     Dosage: DOSE UNKNOWN, 3CYCLE
     Route: 065
     Dates: start: 202201, end: 2022
  6. DEXAMETHASONE [Concomitant]
     Active Substance: DEXAMETHASONE
     Indication: Amyloidosis
     Dosage: DOSE UNKNOWN, 3CYCLE
     Route: 065
     Dates: start: 202201, end: 2022
  7. MELPHALAN [Concomitant]
     Active Substance: MELPHALAN
     Indication: Autologous haematopoietic stem cell transplant
     Route: 065
  8. ACYCLOVIR [Concomitant]
     Active Substance: ACYCLOVIR
     Dosage: DOSE UNKNOWN
     Route: 065
     Dates: start: 20220623
  9. SULFAMETHOXAZOLE\TRIMETHOPRIM [Concomitant]
     Active Substance: SULFAMETHOXAZOLE\TRIMETHOPRIM
     Dosage: DOSE UNKNOWN
     Route: 065
     Dates: start: 20220623
  10. FLUCONAZOLE [Concomitant]
     Active Substance: FLUCONAZOLE
     Dosage: DOSE UNKNOWN
     Route: 065
     Dates: start: 20220623
  11. LEVOFLOXACIN HEMIHYDRATE [Concomitant]
     Active Substance: LEVOFLOXACIN
     Dosage: DOSE UNKNOWN
     Route: 065
     Dates: start: 20220623
  12. HUMAN IMMUNOGLOBULIN G [Concomitant]
     Active Substance: HUMAN IMMUNOGLOBULIN G
     Route: 042
     Dates: start: 20220628

REACTIONS (4)
  - Engraftment syndrome [Recovering/Resolving]
  - Graft versus host disease [Recovering/Resolving]
  - Febrile neutropenia [Recovering/Resolving]
  - Clostridium difficile colitis [Recovering/Resolving]

NARRATIVE: CASE EVENT DATE: 20220514
